FAERS Safety Report 23067285 (Version 2)
Quarter: 2023Q4

REPORT INFORMATION
  Report Type: Spontaneous
  Country: DE (occurrence: DE)
  Receive Date: 20231016
  Receipt Date: 20231109
  Transmission Date: 20240110
  Serious: Yes (Other)
  Sender: FDA-Public Use
  Company Number: DE-ABBVIE-5447126

PATIENT
  Age: 39 Year
  Sex: Female

DRUGS (1)
  1. ADALIMUMAB [Suspect]
     Active Substance: ADALIMUMAB\ISOPROPYL ALCOHOL
     Indication: Crohn^s disease
     Route: 058
     Dates: start: 2012

REACTIONS (4)
  - Subileus [Recovered/Resolved]
  - Anastomotic stenosis [Unknown]
  - Subileus [Not Recovered/Not Resolved]
  - Stenosis [Unknown]

NARRATIVE: CASE EVENT DATE: 20170101
